FAERS Safety Report 7518189-4 (Version None)
Quarter: 2011Q2

REPORT INFORMATION
  Report Type: 
  Country: None (occurrence: None)
  Receive Date: 20110523
  Receipt Date: 20110509
  Transmission Date: 20111010
  Serious: Yes (Other)
  Sender: FDA-Public Use
  Company Number: 2011GB0120

PATIENT
  Age: 76 Year
  Sex: Female

DRUGS (2)
  1. ANAKINRA (ANAKINRA) [Suspect]
     Indication: RHEUMATOID ARTHRITIS
     Dosage: DAILY
     Dates: start: 20021115, end: 20030515
  2. METHOTREXATE [Concomitant]

REACTIONS (1)
  - SKIN CANCER [None]
